FAERS Safety Report 20906526 (Version 1)
Quarter: 2022Q2

REPORT INFORMATION
  Report Type: Spontaneous
  Country: US (occurrence: None)
  Receive Date: 20220602
  Receipt Date: 20220602
  Transmission Date: 20220721
  Serious: Yes (Hospitalization)
  Sender: FDA-Public Use
  Company Number: None

PATIENT
  Age: 77 Year
  Sex: Male
  Weight: 74 kg

DRUGS (1)
  1. NIRMATRELVIR\RITONAVIR [Suspect]
     Active Substance: NIRMATRELVIR\RITONAVIR
     Indication: Infection
     Dosage: 150/100 MG BID PO? ?
     Route: 048
     Dates: start: 20220517, end: 20220520

REACTIONS (5)
  - Nausea [None]
  - Vomiting [None]
  - Hyponatraemia [None]
  - Paranasal sinus discomfort [None]
  - Pain [None]

NARRATIVE: CASE EVENT DATE: 20220523
